FAERS Safety Report 10210874 (Version 2)
Quarter: 2014Q2

REPORT INFORMATION
  Report Type: Spontaneous
  Country: US (occurrence: US)
  Receive Date: 20140602
  Receipt Date: 20140602
  Transmission Date: 20141212
  Serious: No
  Sender: FDA-Public Use
  Company Number: US-009507513-1311USA011148

PATIENT
  Sex: Female
  Weight: 70.3 kg

DRUGS (14)
  1. MIRALAX [Suspect]
     Indication: CONSTIPATION
     Dosage: UNK, UNKNOWN
     Route: 048
     Dates: start: 2011
  2. MIRALAX [Suspect]
     Dosage: UNK, UNKNOWN
     Route: 048
     Dates: start: 2011
  3. MIRALAX [Suspect]
     Dosage: UNK, UNKNOWN
     Route: 048
     Dates: start: 2011
  4. CALCIUM (UNSPECIFIED) (+) VITAMIN D (UNSPECIFIED) [Concomitant]
     Indication: PRODUCT USED FOR UNKNOWN INDICATION
     Dosage: UNK, UNKNOWN
  5. TRAMADOL HYDROCHLORIDE [Concomitant]
     Indication: SCOLIOSIS
     Dosage: UNK, UNKNOWN
  6. VIMOVO [Concomitant]
     Indication: ARTHRITIS
     Dosage: UNK, UNKNOWN
  7. FLECTOR [Concomitant]
     Indication: ARTHRITIS
     Dosage: UNK, UNKNOWN
  8. LISINOPRIL [Concomitant]
     Indication: HYPERTENSION
     Dosage: UNK, UNKNOWN
  9. AMLODIPINE [Concomitant]
     Indication: HYPERTENSION
     Dosage: UNK, UNKNOWN
  10. ASPIRIN [Concomitant]
     Indication: HYPERTENSION
     Dosage: UNK, UNKNOWN
  11. FLUDROCORTISONE [Concomitant]
     Indication: DEHYDRATION
     Dosage: UNK, UNKNOWN
  12. FLUDROCORTISONE [Concomitant]
     Indication: SYNCOPE
  13. MECLIZINE [Concomitant]
     Indication: DIZZINESS
     Dosage: UNK, UNKNOWN
  14. ROPINIROLE [Concomitant]
     Indication: RESTLESS LEGS SYNDROME

REACTIONS (3)
  - Flatulence [Not Recovered/Not Resolved]
  - Gastrointestinal sounds abnormal [Not Recovered/Not Resolved]
  - Incorrect drug administration duration [Unknown]
